FAERS Safety Report 7681581-1 (Version None)
Quarter: 2011Q3

REPORT INFORMATION
  Report Type: 
  Country: None (occurrence: None)
  Receive Date: 20110812
  Receipt Date: 20110803
  Transmission Date: 20111222
  Serious: Yes (Other)
  Sender: FDA-Public Use
  Company Number: PHHY2011JP47441

PATIENT
  Age: 18 Year
  Sex: Female

DRUGS (2)
  1. SANDIMMUNE [Suspect]
     Indication: STEM CELL TRANSPLANT
     Dosage: 3 MG/KG,
     Route: 042
  2. METHOTREXATE [Suspect]
     Indication: STEM CELL TRANSPLANT
     Dosage: UNK UKN, UNK

REACTIONS (3)
  - POST TRANSPLANT DISTAL LIMB SYNDROME [None]
  - PAIN IN EXTREMITY [None]
  - PRURITUS [None]
